FAERS Safety Report 15434797 (Version 1)
Quarter: 2018Q3

REPORT INFORMATION
  Report Type: Spontaneous
  Country: HR (occurrence: HR)
  Receive Date: 20180927
  Receipt Date: 20180927
  Transmission Date: 20181010
  Serious: Yes (Hospitalization, Other)
  Sender: FDA-Public Use
  Company Number: HR-JNJFOC-20180929282

PATIENT
  Sex: Male

DRUGS (1)
  1. XARELTO [Suspect]
     Active Substance: RIVAROXABAN
     Indication: ATRIAL FIBRILLATION
     Route: 048
     Dates: start: 2014

REACTIONS (7)
  - Defaecation disorder [Unknown]
  - Anaemia [Unknown]
  - Colon cancer [Unknown]
  - Acute coronary syndrome [Unknown]
  - Pulmonary oedema [Unknown]
  - Decreased appetite [Unknown]
  - Acute myocardial infarction [Unknown]
